FAERS Safety Report 20187177 (Version 2)
Quarter: 2022Q1

REPORT INFORMATION
  Report Type: Spontaneous
  Country: US (occurrence: US)
  Receive Date: 20211215
  Receipt Date: 20220127
  Transmission Date: 20220423
  Serious: No
  Sender: FDA-Public Use
  Company Number: US-MICRO LABS LIMITED-ML2021-03686

PATIENT
  Age: 72 Year
  Sex: Female
  Weight: 60.7 kg

DRUGS (3)
  1. METHENAMINE HIPPURATE [Suspect]
     Active Substance: METHENAMINE HIPPURATE
     Indication: Cystitis
     Dosage: TWICE A DAY
     Dates: start: 20211008, end: 20211109
  2. VITAMIN C [Concomitant]
     Active Substance: ASCORBIC ACID
  3. ERGOCALCIFEROL [Concomitant]
     Active Substance: ERGOCALCIFEROL

REACTIONS (2)
  - Abdominal distension [Unknown]
  - Diarrhoea [Recovered/Resolved]

NARRATIVE: CASE EVENT DATE: 20211109
